FAERS Safety Report 6120374-3 (Version None)
Quarter: 2009Q1

REPORT INFORMATION
  Report Type: 
  Country: None (occurrence: None)
  Receive Date: 20090313
  Receipt Date: 20090313
  Transmission Date: 20090719
  Serious: Yes (Other)
  Sender: FDA-Public Use
  Company Number: None

PATIENT
  Sex: Female
  Weight: 66.2252 kg

DRUGS (4)
  1. DILTIAZEM [Suspect]
     Indication: HYPOTENSION
     Dosage: #30
     Dates: start: 20071022
  2. DILTIAZEM [Suspect]
     Indication: SYNCOPE
     Dosage: #30
     Dates: start: 20071022
  3. CARTIA XT [Suspect]
     Indication: HYPOTENSION
     Dosage: #30
     Dates: start: 20071020
  4. CARTIA XT [Suspect]
     Indication: SYNCOPE
     Dosage: #30
     Dates: start: 20071020

REACTIONS (2)
  - HYPOTENSION [None]
  - SYNCOPE [None]
